FAERS Safety Report 18035077 (Version 5)
Quarter: 2020Q4

REPORT INFORMATION
  Report Type: Report from Study
  Country: None (occurrence: US)
  Receive Date: 20200717
  Receipt Date: 20201117
  Transmission Date: 20210113
  Serious: Yes (Hospitalization)
  Sender: FDA-Public Use
  Company Number: US-ABBVIE-20K-163-3480397-00

PATIENT
  Age: 54 Year
  Sex: Female

DRUGS (5)
  1. HUMIRA [Suspect]
     Active Substance: ADALIMUMAB
     Indication: RHEUMATOID ARTHRITIS
     Route: 058
     Dates: start: 2018, end: 202010
  2. HUMIRA [Suspect]
     Active Substance: ADALIMUMAB
     Indication: PSORIASIS
  3. METHOTREXATE. [Suspect]
     Active Substance: METHOTREXATE
     Indication: RHEUMATOID ARTHRITIS
     Route: 048
     Dates: end: 2019
  4. SYNTHROID [Concomitant]
     Active Substance: LEVOTHYROXINE SODIUM
     Indication: PRODUCT USED FOR UNKNOWN INDICATION
  5. HUMIRA [Suspect]
     Active Substance: ADALIMUMAB
     Indication: PSORIATIC ARTHROPATHY
     Route: 058

REACTIONS (44)
  - Allergy to animal [Unknown]
  - Hepatic enzyme increased [Recovering/Resolving]
  - Blood test abnormal [Unknown]
  - Pyrexia [Recovered/Resolved]
  - Nephropathy [Not Recovered/Not Resolved]
  - Rhinorrhoea [Not Recovered/Not Resolved]
  - Thinking abnormal [Not Recovered/Not Resolved]
  - Hypersensitivity [Not Recovered/Not Resolved]
  - Therapeutic response shortened [Unknown]
  - Myalgia [Unknown]
  - Pain [Not Recovered/Not Resolved]
  - C-reactive protein increased [Recovering/Resolving]
  - Papilloedema [Not Recovered/Not Resolved]
  - Insomnia [Not Recovered/Not Resolved]
  - Swelling [Unknown]
  - C-reactive protein increased [Recovered/Resolved]
  - Stress [Unknown]
  - Drug hypersensitivity [Not Recovered/Not Resolved]
  - Sneezing [Unknown]
  - Memory impairment [Unknown]
  - Neuropathy peripheral [Unknown]
  - Brain oedema [Unknown]
  - Pruritus allergic [Unknown]
  - Disturbance in attention [Unknown]
  - Sensory loss [Not Recovered/Not Resolved]
  - Rheumatoid arthritis [Recovered/Resolved]
  - Hypoaesthesia [Not Recovered/Not Resolved]
  - Hypoaesthesia [Not Recovered/Not Resolved]
  - Immune system disorder [Recovered/Resolved]
  - Lymphadenopathy [Unknown]
  - Thrombosis [Unknown]
  - Fibromyalgia [Not Recovered/Not Resolved]
  - Drug ineffective [Not Recovered/Not Resolved]
  - Chest pain [Recovered/Resolved]
  - Gait inability [Unknown]
  - Feeling abnormal [Unknown]
  - Bladder disorder [Unknown]
  - Weight increased [Recovering/Resolving]
  - Osteoarthritis [Unknown]
  - Dysphemia [Not Recovered/Not Resolved]
  - Visual acuity reduced [Not Recovered/Not Resolved]
  - Depression [Unknown]
  - Uveitis [Not Recovered/Not Resolved]
  - Hypertension [Recovered/Resolved]

NARRATIVE: CASE EVENT DATE: 201806
